FAERS Safety Report 9430639 (Version 1)
Quarter: 2013Q3

REPORT INFORMATION
  Report Type: Report from Study
  Country: US (occurrence: US)
  Receive Date: 20130730
  Receipt Date: 20130730
  Transmission Date: 20140515
  Serious: No
  Sender: FDA-Public Use
  Company Number: US-ABBOTT-13P-163-1089582-00

PATIENT
  Sex: Male
  Weight: 83.54 kg

DRUGS (3)
  1. NIASPAN (COATED) [Suspect]
     Indication: BLOOD TRIGLYCERIDES INCREASED
     Dosage: 1 AT BEDTIME AND THEN SWITCHED TO MORNING FOR MOST OF THE TIME
     Route: 048
  2. NIASPAN (COATED) [Suspect]
     Dosage: 1 AT BEDTIME AND THEN SWITCHED TO MORNING FOR MOST OF THE TIME
     Route: 048
     Dates: start: 20130513
  3. ASPIRIN [Concomitant]
     Indication: PRODUCT USED FOR UNKNOWN INDICATION
     Dosage: 1 TO 3 TABLETS AS NEEDED
     Route: 048

REACTIONS (5)
  - Blood uric acid increased [Unknown]
  - Blood cholesterol abnormal [Unknown]
  - Erythema [Unknown]
  - Pain in extremity [Not Recovered/Not Resolved]
  - Flushing [Unknown]
